FAERS Safety Report 5706795-9 (Version None)
Quarter: 2008Q2

REPORT INFORMATION
  Report Type: 
  Country: None (occurrence: None)
  Receive Date: 20080415
  Receipt Date: 20080415
  Transmission Date: 20081010
  Serious: Yes (Life-Threatening)
  Sender: FDA-Public Use
  Company Number: None

PATIENT
  Age: 49 Year
  Sex: Female
  Weight: 77.1115 kg

DRUGS (1)
  1. SINGULAIR [Suspect]
     Indication: SEASONAL ALLERGY
     Dosage: ONE TABLET DAILY
     Dates: start: 20070301, end: 20080331

REACTIONS (4)
  - ANXIETY [None]
  - MENTAL DISORDER [None]
  - MOOD SWINGS [None]
  - MORBID THOUGHTS [None]
